FAERS Safety Report 8248272 (Version 5)
Quarter: 2012Q4

REPORT INFORMATION
  Report Type: 
  Country: US (occurrence: None)
  Receive Date: 20111110
  Receipt Date: 20120914
  Transmission Date: 20130627
  Serious: Yes (Life-Threatening, Hospitalization)
  Sender: FDA-Public Use
  Company Number: 2011AP002493

PATIENT
  Age: 30 Year
  Sex: Female

DRUGS (3)
  1. DILTIAZEM [Suspect]
     Indication: HYPERTROPHIC CARDIOMYOPATHY
  2. AMIODARONE HYDROCHLORIDE [Suspect]
     Indication: HYPERTROPHIC CARDIOMYOPATHY
  3. METOPROLOL SUCCINATE [Suspect]
     Indication: HYPERTROPHIC CARDIOMYOPATHY

REACTIONS (9)
  - Cardiogenic shock [None]
  - Overdose [None]
  - Abdominal pain [None]
  - Blood glucose increased [None]
  - Heart rate decreased [None]
  - Ejection fraction decreased [None]
  - Renal failure [None]
  - Confusional state [None]
  - Drug effect decreased [None]
